FAERS Safety Report 9155676 (Version 1)
Quarter: 2013Q1

REPORT INFORMATION
  Report Type: Spontaneous
  Country: CN (occurrence: CN)
  Receive Date: 20130311
  Receipt Date: 20130311
  Transmission Date: 20140127
  Serious: Yes (Death, Hospitalization)
  Sender: FDA-Public Use
  Company Number: CN-WATSON-2013-03719

PATIENT
  Age: 48 Year
  Sex: Female

DRUGS (2)
  1. CLINDAMYCIN HYDROCHLORIDE (UNKNOWN) [Suspect]
     Indication: PYREXIA
     Dosage: UNK, UNKNOWN
     Route: 065
  2. OFLOXACINE (UNKNOWN) [Suspect]
     Indication: PYREXIA
     Dosage: UNK, UNKNOWN
     Route: 065

REACTIONS (5)
  - Septic shock [Fatal]
  - Staphylococcal infection [Fatal]
  - Disseminated intravascular coagulation [Fatal]
  - Multi-organ failure [Fatal]
  - Fungal infection [Fatal]
